FAERS Safety Report 21968604 (Version 1)
Quarter: 2023Q1

REPORT INFORMATION
  Report Type: Spontaneous
  Country: US (occurrence: None)
  Receive Date: 20230207
  Receipt Date: 20230207
  Transmission Date: 20230417
  Serious: Yes (Other)
  Sender: FDA-Public Use
  Company Number: None

PATIENT
  Age: 21 Year
  Sex: Male
  Weight: 45 kg

DRUGS (4)
  1. DIASTAT ACUDIAL [Suspect]
     Active Substance: DIAZEPAM
     Indication: Seizure
  2. DILANTIN [Concomitant]
     Active Substance: PHENYTOIN
  3. KEPPRA [Concomitant]
     Active Substance: LEVETIRACETAM
  4. INFANTS MOTRIN [Concomitant]
     Active Substance: IBUPROFEN

REACTIONS (4)
  - Product substitution issue [None]
  - Product dispensing error [None]
  - Seizure [None]
  - Drug ineffective [None]
